FAERS Safety Report 7632659-X (Version None)
Quarter: 2011Q3

REPORT INFORMATION
  Report Type: 
  Country: None (occurrence: None)
  Receive Date: 20110725
  Receipt Date: 20101124
  Transmission Date: 20111222
  Serious: Yes (Other)
  Sender: FDA-Public Use
  Company Number: US-BRISTOL-MYERS SQUIBB COMPANY-15388226

PATIENT
  Age: 91 Year
  Sex: Male

DRUGS (1)
  1. COUMADIN [Suspect]
     Dosage: DRUG INTERRUPTED FOR 5 DAYS AND RESUMED.
     Dates: end: 20101020

REACTIONS (1)
  - TRANSIENT ISCHAEMIC ATTACK [None]
